FAERS Safety Report 8808475 (Version 2)
Quarter: 2013Q1

REPORT INFORMATION
  Report Type: Spontaneous
  Country: US (occurrence: US)
  Receive Date: 20120926
  Receipt Date: 20130228
  Transmission Date: 20140127
  Serious: Yes (Other)
  Sender: FDA-Public Use
  Company Number: US-BAYER-2012-097292

PATIENT
  Age: 45 Year
  Sex: Female
  Weight: 77.1 kg

DRUGS (3)
  1. YASMIN [Suspect]
     Indication: ACNE
     Dosage: UNK
     Dates: start: 200610, end: 200709
  2. YASMIN [Suspect]
     Indication: CONTRACEPTION
  3. YAZ [Suspect]
     Indication: CONTRACEPTION
     Dosage: UNK
     Dates: start: 200809, end: 2009

REACTIONS (5)
  - Cholecystitis chronic [None]
  - Cholelithiasis [None]
  - Abdominal pain [None]
  - Injury [None]
  - Pain [None]
